FAERS Safety Report 8984467 (Version 1)
Quarter: 2012Q4

REPORT INFORMATION
  Report Type: Spontaneous
  Country: NL (occurrence: None)
  Receive Date: 20121213
  Receipt Date: 20121213
  Transmission Date: 20130627
  Serious: Yes (Death, Other)
  Sender: FDA-Public Use
  Company Number: FK201203750

PATIENT
  Age: 55 Year
  Sex: Male

DRUGS (3)
  1. VALPROATE [Suspect]
     Indication: EPILEPSY
     Dosage: 1in 6 hr
  2. INSULIN [Concomitant]
  3. ESOMEPRAZOLE [Concomitant]

REACTIONS (9)
  - Acute hepatic failure [None]
  - Toxicity to various agents [None]
  - Multi-organ failure [None]
  - Respiratory distress [None]
  - Weight decreased [None]
  - Vomiting [None]
  - Hypocalcaemia [None]
  - Anaemia [None]
  - Hyperglycaemia [None]
